FAERS Safety Report 5670744-2 (Version None)
Quarter: 2008Q1

REPORT INFORMATION
  Report Type: 
  Country: None (occurrence: None)
  Receive Date: 20080318
  Receipt Date: 20080310
  Transmission Date: 20080703
  Serious: Yes (Other)
  Sender: FDA-Public Use
  Company Number: PHEH2006US10884

PATIENT
  Age: 43 Year
  Sex: Female
  Weight: 77.3 kg

DRUGS (19)
  1. AREDIA [Suspect]
     Indication: MULTIPLE MYELOMA
     Dosage: 90 MG, UNK
     Dates: start: 20020501
  2. AREDIA [Suspect]
     Dosage: 90 MG, QMO
     Dates: start: 19951101
  3. ZOMETA [Suspect]
     Dosage: 4 MG, UNK
     Dates: end: 20020501
  4. DEXAMETHASONE TAB [Concomitant]
     Indication: MULTIPLE MYELOMA
     Dosage: 40 MG FOR 4 DAYS MONTHLY
     Route: 048
     Dates: start: 19951101, end: 20000111
  5. INTERFERON [Concomitant]
     Indication: MULTIPLE MYELOMA
     Dates: end: 20000111
  6. THALIDOMIDE [Concomitant]
     Indication: MULTIPLE MYELOMA
     Dosage: 100 MG, QD
     Route: 048
     Dates: start: 20000111
  7. PROCARDIA XL [Concomitant]
     Indication: HYPERTENSION
     Dosage: 30 MG, QD
     Route: 048
  8. PROCRIT [Concomitant]
  9. AXID [Concomitant]
     Dosage: 150 MG, BID
  10. VINCRISTINE [Concomitant]
     Indication: MULTIPLE MYELOMA
     Dates: start: 19951201, end: 19960301
  11. ADRIAMYCIN PFS [Concomitant]
     Indication: MULTIPLE MYELOMA
     Dates: start: 19951201, end: 19960301
  12. MELPHALAN [Concomitant]
     Dates: start: 19961001
  13. MELPHALAN [Concomitant]
     Dates: start: 19970201
  14. EPOGEN [Concomitant]
     Dosage: UNK, PRN
  15. BACTRIM DS [Concomitant]
  16. DIFLUCAN [Concomitant]
  17. RESTORIL [Concomitant]
  18. VALTREX [Concomitant]
  19. CLONIDINE [Concomitant]
     Indication: HYPERTENSION

REACTIONS (34)
  - ABSCESS [None]
  - ANXIETY [None]
  - BLINDNESS [None]
  - BONE DEBRIDEMENT [None]
  - DECREASED INTEREST [None]
  - DIZZINESS [None]
  - EXCESSIVE GRANULATION TISSUE [None]
  - GENERAL PHYSICAL HEALTH DETERIORATION [None]
  - GRANULOMA [None]
  - HEADACHE [None]
  - HYDROCEPHALUS [None]
  - HYPERTENSION [None]
  - HYSTERECTOMY [None]
  - INFLAMMATION [None]
  - JOINT SURGERY [None]
  - LYMPHADENOPATHY [None]
  - MULTIPLE SCLEROSIS [None]
  - NUCLEAR MAGNETIC RESONANCE IMAGING BRAIN [None]
  - OPTIC NEURITIS [None]
  - OSTEOARTHRITIS [None]
  - OSTEOMYELITIS [None]
  - OSTEONECROSIS [None]
  - PAIN [None]
  - PARANASAL SINUS BENIGN NEOPLASM [None]
  - PATHOLOGICAL FRACTURE [None]
  - PYREXIA [None]
  - RENAL DISORDER [None]
  - SALPINGO-OOPHORECTOMY BILATERAL [None]
  - SARCOIDOSIS [None]
  - SWELLING [None]
  - TOOTH EXTRACTION [None]
  - TUBERCULOSIS [None]
  - UTERINE LEIOMYOMA [None]
  - VISUAL DISTURBANCE [None]
